FAERS Safety Report 5566503-1 (Version None)
Quarter: 2007Q4

REPORT INFORMATION
  Report Type: 
  Country: None (occurrence: None)
  Receive Date: 20071214
  Receipt Date: 20071203
  Transmission Date: 20080405
  Serious: Yes (Hospitalization)
  Sender: FDA-Public Use
  Company Number: TPA2007A02346

PATIENT
  Age: 67 Year
  Sex: Male
  Weight: 68.0396 kg

DRUGS (3)
  1. ROZEREM [Suspect]
     Indication: INITIAL INSOMNIA
     Dosage: 8 MG, QHS, ONCE, PER ORAL
     Route: 048
     Dates: start: 20070101, end: 20070101
  2. COUMADIN [Concomitant]
  3. MULTI-VITAMINS [Concomitant]

REACTIONS (2)
  - SENSATION OF HEAVINESS [None]
  - SOMNOLENCE [None]
